FAERS Safety Report 25636866 (Version 1)
Quarter: 2025Q3

REPORT INFORMATION
  Report Type: Spontaneous
  Country: US (occurrence: US)
  Receive Date: 20250804
  Receipt Date: 20250804
  Transmission Date: 20251020
  Serious: No
  Sender: GRIFOLS
  Company Number: US-IGSA-BIG0036877

PATIENT
  Age: 51 Year
  Sex: Female

DRUGS (2)
  1. GAMUNEX-C [Suspect]
     Active Substance: HUMAN IMMUNOGLOBULIN G
     Indication: Multifocal motor neuropathy
     Dosage: 60 GRAM, Q.3WK.
     Route: 042
     Dates: start: 20191115
  2. GAMUNEX-C [Suspect]
     Active Substance: HUMAN IMMUNOGLOBULIN G
     Indication: Off label use

REACTIONS (2)
  - Dyspepsia [Recovering/Resolving]
  - Lip swelling [Recovering/Resolving]

NARRATIVE: CASE EVENT DATE: 20250722
